FAERS Safety Report 5551229-0 (Version None)
Quarter: 2007Q4

REPORT INFORMATION
  Report Type: 
  Country: None (occurrence: None)
  Receive Date: 20071128
  Receipt Date: 20070717
  Transmission Date: 20080405
  Serious: Yes (Hospitalization)
  Sender: FDA-Public Use
  Company Number: FRVA20070009

PATIENT
  Sex: Female

DRUGS (5)
  1. FROVA [Suspect]
     Indication: MIGRAINE
  2. AXERT [Suspect]
     Indication: MIGRAINE
  3. AMERGE [Suspect]
     Indication: MIGRAINE
     Dosage: PER ORAL
     Route: 048
  4. IMITREX [Suspect]
     Indication: MIGRAINE
     Dosage: PER ORAL
     Route: 048
  5. RELPAX [Suspect]
     Indication: MIGRAINE

REACTIONS (2)
  - ARTERIOSPASM CORONARY [None]
  - CARDIOMYOPATHY [None]
